FAERS Safety Report 7751462-3 (Version None)
Quarter: 2011Q3

REPORT INFORMATION
  Report Type: 
  Country: None (occurrence: None)
  Receive Date: 20110914
  Receipt Date: 20110906
  Transmission Date: 20111222
  Serious: Yes (Other)
  Sender: FDA-Public Use
  Company Number: PHHY2011CO72587

PATIENT
  Sex: Female

DRUGS (11)
  1. FUROSEMIDE [Concomitant]
     Dosage: 40 MG
  2. SPIRONOLACTONE [Concomitant]
     Dosage: 50 MG
  3. COLCHICINE [Concomitant]
     Dosage: 0.5 MG, UNK
  4. NORFLOXACIN [Concomitant]
     Dosage: UNK UKN, UNK
  5. PROPRANOLOL [Concomitant]
     Dosage: 40 MG
  6. OMEPRAZOLE [Concomitant]
     Dosage: UNK UKN, UNK
  7. CALCIUM WITH VITAMIN D [Concomitant]
     Dosage: UNK UKN, UNK
  8. ZOLEDRONOC ACID [Suspect]
     Indication: OSTEOPOROSIS
     Dosage: 5 MG PER 100ML
     Route: 017
     Dates: start: 20110802
  9. URSACOL [Concomitant]
     Dosage: 300 MG, UNK
  10. LEVOTHYROXINE SODIUM [Concomitant]
     Dosage: 100 UG, UNK
  11. CALCITRIOL [Concomitant]
     Dosage: 0.25 MG, UNK

REACTIONS (4)
  - MALAISE [None]
  - LUNG NEOPLASM [None]
  - ARTHRALGIA [None]
  - PYREXIA [None]
